FAERS Safety Report 16461522 (Version 2)
Quarter: 2019Q3

REPORT INFORMATION
  Report Type: Spontaneous
  Country: US (occurrence: US)
  Receive Date: 20190621
  Receipt Date: 20190718
  Transmission Date: 20191004
  Serious: Yes (Other)
  Sender: FDA-Public Use
  Company Number: US-HIKMA PHARMACEUTICALS USA INC.-US-H14001-19-04069

PATIENT

DRUGS (1)
  1. FLUTICASONE PROPIONATE. [Suspect]
     Active Substance: FLUTICASONE PROPIONATE
     Indication: HYPERSENSITIVITY
     Route: 045
     Dates: start: 2019

REACTIONS (9)
  - Swollen tongue [Unknown]
  - Eating disorder [Unknown]
  - Oral pain [Unknown]
  - Dysarthria [Unknown]
  - Accidental exposure to product [Unknown]
  - Oral fungal infection [Unknown]
  - Gingival bleeding [Unknown]
  - Tinea infection [Unknown]
  - Stomatitis [Unknown]

NARRATIVE: CASE EVENT DATE: 2019
